FAERS Safety Report 12128162 (Version 1)
Quarter: 2016Q1

REPORT INFORMATION
  Report Type: Spontaneous
  Country: US (occurrence: US)
  Receive Date: 20160229
  Receipt Date: 20160229
  Transmission Date: 20160526
  Serious: Yes (Death, Hospitalization)
  Sender: FDA-Public Use
  Company Number: US-MYLANLABS-2016M1008453

PATIENT

DRUGS (7)
  1. HALOPERIDOL. [Suspect]
     Active Substance: HALOPERIDOL
     Indication: AGITATION
  2. MEMANTINE. [Suspect]
     Active Substance: MEMANTINE
     Indication: AGITATION
  3. LORAZEPAM. [Suspect]
     Active Substance: LORAZEPAM
     Indication: AGITATION
  4. MEMANTINE. [Suspect]
     Active Substance: MEMANTINE
     Indication: CONFUSIONAL STATE
     Route: 065
  5. LORAZEPAM. [Suspect]
     Active Substance: LORAZEPAM
     Indication: CONFUSIONAL STATE
     Route: 065
  6. HALOPERIDOL. [Suspect]
     Active Substance: HALOPERIDOL
     Indication: CONFUSIONAL STATE
     Route: 065
  7. FLEXERIL [Suspect]
     Active Substance: CYCLOBENZAPRINE HYDROCHLORIDE
     Indication: GOUT
     Dosage: 3 TIMES A DAY
     Route: 065

REACTIONS (5)
  - Condition aggravated [Fatal]
  - Infection [Fatal]
  - Malnutrition [Not Recovered/Not Resolved]
  - Delirium [Fatal]
  - Dehydration [Unknown]
